FAERS Safety Report 6055948-1 (Version None)
Quarter: 2009Q1

REPORT INFORMATION
  Report Type: 
  Country: None (occurrence: None)
  Receive Date: 20090128
  Receipt Date: 20090123
  Transmission Date: 20090719
  Serious: No
  Sender: FDA-Public Use
  Company Number: US-B.I. PHARMACEUTICALS,INC./RIDGEFIELD-2009-BP-00911BP

PATIENT
  Sex: Female

DRUGS (2)
  1. SPIRIVA [Suspect]
     Dosage: 18MCG
     Dates: start: 20060101
  2. FOSAMAX PLUS D [Concomitant]
     Indication: OSTEOPOROSIS

REACTIONS (1)
  - GASTROOESOPHAGEAL REFLUX DISEASE [None]
